FAERS Safety Report 8580744 (Version 2)
Quarter: 2012Q4

REPORT INFORMATION
  Report Type: 
  Country: US (occurrence: US)
  Receive Date: 20120525
  Receipt Date: 20121205
  Transmission Date: 20130627
  Serious: Yes (Hospitalization)
  Sender: FDA-Public Use
  Company Number: US-ABBOTT-12P-163-0936182-00

PATIENT
  Age: 79 Year
  Sex: Male
  Weight: 89.44 kg

DRUGS (1)
  1. BIAXIN [Suspect]
     Indication: PNEUMONIA
     Dates: start: 20120503

REACTIONS (6)
  - Blood glucose decreased [Recovered/Resolved]
  - Dyskinesia [Recovered/Resolved]
  - Anxiety [Recovered/Resolved]
  - Memory impairment [Recovered/Resolved]
  - Agitation [Recovered/Resolved]
  - Mobility decreased [Recovered/Resolved]
